FAERS Safety Report 13617768 (Version 1)
Quarter: 2017Q2

REPORT INFORMATION
  Report Type: Spontaneous
  Country: US (occurrence: US)
  Receive Date: 20170606
  Receipt Date: 20170606
  Transmission Date: 20170830
  Serious: Yes (Hospitalization)
  Sender: FDA-Public Use
  Company Number: US-ELITE LABORATORIES INC.-2017ELT00011

PATIENT
  Age: 35 Year
  Sex: Female

DRUGS (1)
  1. NALTREXONE [Suspect]
     Active Substance: NALTREXONE
     Route: 030

REACTIONS (1)
  - Type IV hypersensitivity reaction [Recovered/Resolved]
